FAERS Safety Report 8564547-9 (Version None)
Quarter: 2012Q3

REPORT INFORMATION
  Report Type: 
  Country: None (occurrence: None)
  Receive Date: 20120803
  Receipt Date: 19860402
  Transmission Date: 20120928
  Serious: No
  Sender: FDA-Public Use
  Company Number: US-009507513-86040132

PATIENT

DRUGS (1)
  1. ELAVIL [Suspect]
     Dosage: 100 MG, UNK
     Route: 048
     Dates: start: 19841001, end: 19860101

REACTIONS (2)
  - LACRIMATION INCREASED [None]
  - EYE DISORDER [None]
